FAERS Safety Report 22320304 (Version 3)
Quarter: 2023Q4

REPORT INFORMATION
  Report Type: Report from Study
  Country: US (occurrence: US)
  Receive Date: 20230515
  Receipt Date: 20231214
  Transmission Date: 20240109
  Serious: No
  Sender: FDA-Public Use
  Company Number: US-AGIOS-2305US03353

PATIENT
  Age: 24 Year
  Sex: Female

DRUGS (5)
  1. MITAPIVAT [Suspect]
     Active Substance: MITAPIVAT
     Indication: Pyruvate kinase deficiency anaemia
     Dosage: 50 MILLIGRAM, BID
     Route: 065
     Dates: start: 20221014
  2. JADENU [Concomitant]
     Active Substance: DEFERASIROX
     Indication: Product used for unknown indication
  3. LATUDA [Concomitant]
     Active Substance: LURASIDONE HYDROCHLORIDE
     Indication: Product used for unknown indication
  4. LITHIUM [Concomitant]
     Active Substance: LITHIUM
     Indication: Product used for unknown indication
  5. ZOLOFT [Concomitant]
     Active Substance: SERTRALINE HYDROCHLORIDE
     Indication: Product used for unknown indication

REACTIONS (2)
  - Haemoglobin decreased [Unknown]
  - Product distribution issue [Unknown]

NARRATIVE: CASE EVENT DATE: 20230419
